FAERS Safety Report 5602537-6 (Version None)
Quarter: 2008Q1

REPORT INFORMATION
  Report Type: 
  Country: None (occurrence: None)
  Receive Date: 20080125
  Receipt Date: 20080114
  Transmission Date: 20080703
  Serious: Yes (Hospitalization)
  Sender: FDA-Public Use
  Company Number: B0504757A

PATIENT
  Age: 58 Year
  Sex: Male
  Weight: 86 kg

DRUGS (12)
  1. AUGMENTIN '125' [Suspect]
     Dosage: 1G THREE TIMES PER DAY
     Route: 042
     Dates: start: 20070825, end: 20070901
  2. TRIFLUCAN [Suspect]
     Route: 042
     Dates: start: 20070806, end: 20071005
  3. SOPROL [Concomitant]
     Dosage: 10MG PER DAY
     Route: 065
  4. VADILEX [Concomitant]
     Route: 065
  5. LIBRAX [Concomitant]
  6. KARDEGIC [Concomitant]
     Dosage: 160MG PER DAY
     Route: 065
  7. LEVOTHYROX [Concomitant]
     Route: 065
  8. LEXOMIL [Concomitant]
     Route: 065
  9. DIAMICRON [Concomitant]
     Route: 065
  10. NOVONORM [Concomitant]
     Route: 065
  11. COVERSYL [Concomitant]
     Route: 065
  12. CARBOPLATIN [Concomitant]
     Dosage: 100MGM2 UNKNOWN
     Route: 065
     Dates: start: 20070829

REACTIONS (3)
  - ANAEMIA [None]
  - GENERAL PHYSICAL HEALTH DETERIORATION [None]
  - MIXED LIVER INJURY [None]
